FAERS Safety Report 20795562 (Version 1)
Quarter: 2022Q2

REPORT INFORMATION
  Report Type: Other
  Country: AU (occurrence: AU)
  Receive Date: 20220506
  Receipt Date: 20220506
  Transmission Date: 20220721
  Serious: Yes (Hospitalization, Other)
  Sender: FDA-Public Use
  Company Number: AU-TOLMAR, INC.-22AU033242

PATIENT
  Age: 80 Year
  Sex: Male

DRUGS (1)
  1. ELIGARD [Suspect]
     Active Substance: LEUPROLIDE ACETATE
     Indication: Prostate cancer
     Dosage: 45 MILLIGRAM, Q 6 MONTH
     Dates: start: 20210526

REACTIONS (5)
  - Pericarditis [Unknown]
  - Weight decreased [Unknown]
  - Pulmonary mass [Unknown]
  - Nodule [Unknown]
  - COVID-19 [Unknown]

NARRATIVE: CASE EVENT DATE: 20220131
